FAERS Safety Report 20159694 (Version 3)
Quarter: 2021Q4

REPORT INFORMATION
  Report Type: Report from Study
  Country: US (occurrence: US)
  Receive Date: 20211208
  Receipt Date: 20211223
  Transmission Date: 20220303
  Serious: No
  Sender: FDA-Public Use
  Company Number: US-NOVARTISTESTPH-NVSC2021US280061

PATIENT
  Age: 39 Year
  Sex: Female

DRUGS (2)
  1. KESIMPTA [Suspect]
     Active Substance: OFATUMUMAB
     Indication: Product used for unknown indication
     Dosage: 20 MG
     Route: 065
  2. KESIMPTA [Suspect]
     Active Substance: OFATUMUMAB
     Dosage: 20 MG, QW (SOLUTION)
     Route: 058
     Dates: start: 20211201

REACTIONS (5)
  - Menstrual disorder [Unknown]
  - Pain [Unknown]
  - Intermenstrual bleeding [Not Recovered/Not Resolved]
  - Headache [Unknown]
  - Extrasystoles [Not Recovered/Not Resolved]

NARRATIVE: CASE EVENT DATE: 20211201
